FAERS Safety Report 7318517-9 (Version None)
Quarter: 2011Q1

REPORT INFORMATION
  Report Type: 
  Country: None (occurrence: None)
  Receive Date: 20110228
  Receipt Date: 20110215
  Transmission Date: 20110831
  Serious: No
  Sender: FDA-Public Use
  Company Number: US-PFIZER INC-2010157294

PATIENT
  Sex: Female
  Weight: 56.2 kg

DRUGS (9)
  1. COSOPT [Suspect]
     Dosage: UNK
     Dates: start: 20070714, end: 20080827
  2. XALATAN [Suspect]
     Indication: GLAUCOMA
     Dosage: 14 GTT, 1X/DAY, AT BEDTIME
     Route: 047
  3. TIMOLOL MALEATE [Suspect]
     Dosage: UNK
     Dates: start: 20080901, end: 20081201
  4. TIMOLOL MALEATE [Suspect]
     Dosage: 0.5 % 4 TWICE DAILY
     Dates: start: 20070301, end: 20080801
  5. AMLODIPINE [Concomitant]
     Indication: HYPERTENSION
     Dosage: UNK
  6. COSOPT [Suspect]
     Dosage: 4 GTT, 2X/DAY
  7. COSOPT [Suspect]
     Dosage: UNK, 2X/DAY
  8. VALSARTAN [Concomitant]
     Indication: HYPERTENSION
     Dosage: UNK
  9. COSOPT [Suspect]
     Indication: GLAUCOMA
     Dosage: 2 TO 0.5 PERCENT 4 GTT TWICE DAILY
     Route: 047

REACTIONS (3)
  - SKIN DISCOLOURATION [None]
  - COUGH [None]
  - DRY EYE [None]
